FAERS Safety Report 16946596 (Version 1)
Quarter: 2019Q4

REPORT INFORMATION
  Report Type: Spontaneous
  Country: GB (occurrence: GB)
  Receive Date: 20191022
  Receipt Date: 20191022
  Transmission Date: 20200122
  Serious: Yes (Other)
  Sender: FDA-Public Use
  Company Number: GB-MYLANLABS-2019M1099599

PATIENT
  Age: 50 Year
  Sex: Female
  Weight: 108 kg

DRUGS (13)
  1. PREGABALIN. [Concomitant]
     Active Substance: PREGABALIN
     Dosage: 2 DOSAGE FORM, QD
     Dates: start: 20190411
  2. NEFOPAM [Concomitant]
     Active Substance: NEFOPAM
     Dosage: 6 DOSAGE FORM, QD
     Dates: start: 20190530
  3. KLIOFEM [Concomitant]
     Active Substance: ESTRADIOL\NORETHINDRONE ACETATE
     Dosage: TAKE ONE DAILY
     Dates: start: 20190805
  4. PROMETHAZINE HYDROCHLORIDE. [Concomitant]
     Active Substance: PROMETHAZINE HYDROCHLORIDE
     Dosage: 1 TAKEN TWICE DAILY AS REQUIRED
     Dates: start: 20190311
  5. KAPAKE [Concomitant]
     Active Substance: ACETAMINOPHEN\CODEINE PHOSPHATE
     Dosage: TAKE ONE OR TWO 4 TIMES/DAY
     Dates: start: 20190722, end: 20190819
  6. ORLISTAT. [Concomitant]
     Active Substance: ORLISTAT
     Dosage: 1 THREE TIMES DAILY WITH MEAL
     Dates: start: 20190722, end: 20190819
  7. TERBINAFINE. [Suspect]
     Active Substance: TERBINAFINE
     Indication: PRODUCT USED FOR UNKNOWN INDICATION
     Dosage: 250 MILLIGRAM, QD
     Dates: start: 20190917
  8. DULOXETINE. [Concomitant]
     Active Substance: DULOXETINE
     Dosage: 1 DOSAGE FORM, QD
     Dates: start: 20190311
  9. EMERADE [Concomitant]
     Dosage: USE AS DIRECTED
     Dates: start: 20190311
  10. COCODAMOL [Concomitant]
     Active Substance: ACETAMINOPHEN\CODEINE PHOSPHATE
     Dosage: TAKE ONE OR TWO 4 TIMES/DAY
     Dates: start: 20190311
  11. CINNARIZINE [Concomitant]
     Active Substance: CINNARIZINE
     Dosage: 3 DOSAGE FORM, QD
     Dates: start: 20190311
  12. EPIPEN [Concomitant]
     Active Substance: EPINEPHRINE
     Dosage: 1 INJECTION AT ONSET OF ATTCK
     Dates: start: 20190923
  13. PROCHLORPERAZINE. [Concomitant]
     Active Substance: PROCHLORPERAZINE
     Dosage: THREE TIMES DAILY WHEN REQUIRED
     Dates: start: 20190311

REACTIONS (1)
  - Myoclonus [Recovering/Resolving]

NARRATIVE: CASE EVENT DATE: 20190925
